FAERS Safety Report 10264135 (Version 1)
Quarter: 2014Q2

REPORT INFORMATION
  Report Type: Spontaneous
  Country: NL (occurrence: NL)
  Receive Date: 20140627
  Receipt Date: 20140627
  Transmission Date: 20141212
  Serious: Yes (Other)
  Sender: FDA-Public Use
  Company Number: NL-BRISTOL-MYERS SQUIBB COMPANY-21101258

PATIENT
  Sex: 0

DRUGS (1)
  1. EXENATIDE [Suspect]

REACTIONS (1)
  - Hypertensive crisis [Unknown]
